FAERS Safety Report 4302661-4 (Version None)
Quarter: 2004Q1

REPORT INFORMATION
  Report Type: 
  Country: None (occurrence: None)
  Receive Date: 20040220
  Receipt Date: 20040210
  Transmission Date: 20041129
  Serious: Yes (Other)
  Sender: FDA-Public Use
  Company Number: 2004008798

PATIENT
  Age: 51 Year
  Sex: Female
  Weight: 68.4932 kg

DRUGS (2)
  1. GLUCOTROL XL [Suspect]
     Indication: DIABETES MELLITUS
     Dosage: 2.5 MG (DAILY), ORAL
     Route: 048
     Dates: start: 20030709, end: 20040130
  2. WELCHOL [Concomitant]

REACTIONS (1)
  - HEPATOTOXICITY [None]
